FAERS Safety Report 24641405 (Version 1)
Quarter: 2024Q4

REPORT INFORMATION
  Report Type: Spontaneous
  Country: US (occurrence: US)
  Receive Date: 20241120
  Receipt Date: 20241120
  Transmission Date: 20250115
  Serious: No
  Sender: NOVARTIS
  Company Number: US-002147023-NVSC2024US159100

PATIENT
  Age: 20 Year
  Sex: Male

DRUGS (1)
  1. FABHALTA [Suspect]
     Active Substance: IPTACOPAN HYDROCHLORIDE
     Indication: Nephritic syndrome
     Dosage: 200 MG, BID
     Route: 048
     Dates: start: 20240420

REACTIONS (3)
  - Abdominal distension [Unknown]
  - Blood creatinine abnormal [Unknown]
  - Off label use [Unknown]

NARRATIVE: CASE EVENT DATE: 20240701
